FAERS Safety Report 7779140-5 (Version None)
Quarter: 2011Q3

REPORT INFORMATION
  Report Type: 
  Country: None (occurrence: None)
  Receive Date: 20110926
  Receipt Date: 20110916
  Transmission Date: 20111222
  Serious: Yes (Hospitalization, Other)
  Sender: FDA-Public Use
  Company Number: PHHY2011DK82714

PATIENT
  Sex: Female

DRUGS (2)
  1. GESTODENE AND ETHINYL ESTRADIOL [Suspect]
     Indication: CONTRACEPTION
     Route: 048
  2. ALLI [Interacting]
     Indication: WEIGHT DECREASED
     Route: 048

REACTIONS (3)
  - MATERNAL EXPOSURE DURING PREGNANCY [None]
  - DRUG INTERACTION [None]
  - ECTOPIC PREGNANCY [None]
